FAERS Safety Report 12602280 (Version 2)
Quarter: 2016Q3

REPORT INFORMATION
  Report Type: Spontaneous
  Country: US (occurrence: US)
  Receive Date: 20160728
  Receipt Date: 20160802
  Transmission Date: 20161109
  Serious: No
  Sender: FDA-Public Use
  Company Number: US-PFIZER INC-2016360822

PATIENT
  Sex: Male

DRUGS (3)
  1. LYRICA [Suspect]
     Active Substance: PREGABALIN
     Dosage: 175 MG, DAILY UNK (100MG IN THE MORNING AND THEN ANOTHER 75MG A COUPLE HOURS LATER)
  2. LYRICA [Suspect]
     Active Substance: PREGABALIN
     Dosage: 275 MG, DAILY (175MG IN AM AND 100MG IN AFTERNOON)
  3. LYRICA [Suspect]
     Active Substance: PREGABALIN
     Dosage: UNK (600-800MG PER DAY)

REACTIONS (10)
  - Withdrawal syndrome [Unknown]
  - Peripheral swelling [Unknown]
  - Joint swelling [Unknown]
  - Anger [Unknown]
  - Nervousness [Unknown]
  - Abdominal distension [Unknown]
  - Social avoidant behaviour [Unknown]
  - Feeling abnormal [Unknown]
  - Abdominal discomfort [Unknown]
  - Drug ineffective [Unknown]
